FAERS Safety Report 9046193 (Version 1)
Quarter: 2013Q1

REPORT INFORMATION
  Report Type: Spontaneous
  Country: CA (occurrence: CA)
  Receive Date: 20130201
  Receipt Date: 20130201
  Transmission Date: 20140127
  Serious: Yes (Other)
  Sender: FDA-Public Use
  Company Number: PHHY2013CA008575

PATIENT
  Age: 55 Year
  Sex: Female

DRUGS (4)
  1. ZOLEDRONATE [Suspect]
     Dosage: 5 MG/365 DAYS
     Route: 042
  2. ALENDRONATE [Suspect]
     Dosage: 1 DF ONE EVERY ONE WEEK
     Route: 048
  3. CALCIUM [Concomitant]
  4. COLECALCIFEROL [Concomitant]

REACTIONS (2)
  - Femur fracture [Unknown]
  - Stress fracture [Unknown]
